FAERS Safety Report 9402910 (Version 1)
Quarter: 2013Q3

REPORT INFORMATION
  Report Type: Spontaneous
  Country: DE (occurrence: DE)
  Receive Date: 20130716
  Receipt Date: 20130716
  Transmission Date: 20140515
  Serious: Yes (Other)
  Sender: FDA-Public Use
  Company Number: DE-UCBSA-091295

PATIENT
  Sex: 0

DRUGS (1)
  1. VIMPAT [Suspect]
     Indication: STATUS EPILEPTICUS

REACTIONS (1)
  - Status epilepticus [Unknown]
